FAERS Safety Report 10520532 (Version 3)
Quarter: 2015Q3

REPORT INFORMATION
  Report Type: Report from Study
  Country: BR (occurrence: BR)
  Receive Date: 20141015
  Receipt Date: 20150710
  Transmission Date: 20151125
  Serious: Yes (Hospitalization)
  Sender: FDA-Public Use
  Company Number: PHHY2014BR133375

PATIENT
  Age: 38 Year
  Sex: Female
  Weight: 64 kg

DRUGS (3)
  1. SANDOSTATIN LAR DEPOT [Suspect]
     Active Substance: OCTREOTIDE ACETATE
     Indication: ACRAL OVERGROWTH
     Dosage: 10 MG, Q2MO (REPORTED AS EVERY 60/4 OR 30 DAYS)
     Route: 030
     Dates: start: 2009
  2. SANDOSTATIN LAR DEPOT [Suspect]
     Active Substance: OCTREOTIDE ACETATE
     Dosage: 10 MG, QMO
     Route: 030
     Dates: start: 2011
  3. SANDOSTATIN LAR DEPOT [Suspect]
     Active Substance: OCTREOTIDE ACETATE
     Dosage: 20 MG, QMO (REPORTED AS EVERY 30 DAYS)
     Route: 065
     Dates: start: 2013

REACTIONS (9)
  - Abdominal pain upper [Recovering/Resolving]
  - Sinusitis [Recovering/Resolving]
  - Cough [Recovering/Resolving]
  - Headache [Recovering/Resolving]
  - Renal cancer [Recovered/Resolved]
  - Influenza [Recovering/Resolving]
  - Facial pain [Recovering/Resolving]
  - Malaise [Recovering/Resolving]
  - Inappropriate schedule of drug administration [Unknown]

NARRATIVE: CASE EVENT DATE: 201304
